FAERS Safety Report 16812486 (Version 1)
Quarter: 2019Q3

REPORT INFORMATION
  Report Type: Spontaneous
  Country: US (occurrence: US)
  Receive Date: 20190916
  Receipt Date: 20190916
  Transmission Date: 20191005
  Serious: Yes (Hospitalization)
  Sender: FDA-Public Use
  Company Number: US-JNJFOC-20190906851

PATIENT
  Age: 62 Year
  Sex: Female
  Weight: 57.66 kg

DRUGS (4)
  1. LETROZOLE. [Concomitant]
     Active Substance: LETROZOLE
  2. XARELTO [Suspect]
     Active Substance: RIVAROXABAN
     Indication: KNEE ARTHROPLASTY
     Route: 048
     Dates: start: 20190812, end: 20190818
  3. URSODIOL. [Concomitant]
     Active Substance: URSODIOL
  4. XARELTO [Suspect]
     Active Substance: RIVAROXABAN
     Indication: THROMBOSIS PROPHYLAXIS

REACTIONS (2)
  - Contusion [Recovering/Resolving]
  - Increased tendency to bruise [Recovered/Resolved]

NARRATIVE: CASE EVENT DATE: 201908
